FAERS Safety Report 24288861 (Version 1)
Quarter: 2024Q3

REPORT INFORMATION
  Report Type: Other
  Country: CA (occurrence: CA)
  Receive Date: 20240906
  Receipt Date: 20240906
  Transmission Date: 20241016
  Serious: Yes (Other)
  Sender: GLENMARK
  Company Number: CA-GLENMARK PHARMACEUTICALS-2023GMK083971

PATIENT

DRUGS (16)
  1. GABAPENTIN [Suspect]
     Active Substance: GABAPENTIN
     Indication: Greater trochanteric pain syndrome
     Dosage: 300 MILLIGRAM, 3 EVERY 1 DAYS
     Route: 048
  2. GABAPENTIN [Suspect]
     Active Substance: GABAPENTIN
     Indication: Pain in extremity
     Dosage: UNK 3 EVERY 1 DAYS
     Route: 048
  3. GABAPENTIN [Suspect]
     Active Substance: GABAPENTIN
     Dosage: UNK
     Route: 048
  4. CELECOXIB [Suspect]
     Active Substance: CELECOXIB
     Indication: Greater trochanteric pain syndrome
     Dosage: 200 MILLIGRAM, 2 EVERY 1 DAYS
     Route: 048
  5. CELECOXIB [Suspect]
     Active Substance: CELECOXIB
     Indication: Pain in extremity
     Dosage: UNK 2 EVERY 1 DAYS
     Route: 048
  6. CELECOXIB [Suspect]
     Active Substance: CELECOXIB
     Dosage: UNK
     Route: 048
  7. CELECOXIB [Suspect]
     Active Substance: CELECOXIB
     Dosage: UNK 1 EVERY 5 DAYS
     Route: 048
  8. DICLOFENAC [Suspect]
     Active Substance: DICLOFENAC
     Indication: Greater trochanteric pain syndrome
     Dosage: UNK
     Route: 061
  9. DICLOFENAC [Suspect]
     Active Substance: DICLOFENAC
     Indication: Pain in extremity
     Dosage: UNK 3 EVERY 1 DAYS
     Route: 061
  10. NAPROXEN [Suspect]
     Active Substance: NAPROXEN
     Indication: Greater trochanteric pain syndrome
     Dosage: UNK
     Route: 065
  11. NAPROXEN [Suspect]
     Active Substance: NAPROXEN
     Indication: Pain in extremity
  12. TRAMADOL [Suspect]
     Active Substance: TRAMADOL\TRAMADOL HYDROCHLORIDE
     Indication: Greater trochanteric pain syndrome
     Dosage: UNK
     Route: 065
  13. TRAMADOL [Suspect]
     Active Substance: TRAMADOL\TRAMADOL HYDROCHLORIDE
     Indication: Pain in extremity
  14. TRAMADOL HYDROCHLORIDE [Suspect]
     Active Substance: TRAMADOL HYDROCHLORIDE
     Indication: Pain in extremity
     Dosage: UNK
     Route: 065
  15. DICLOFENAC SODIUM [Suspect]
     Active Substance: DICLOFENAC\DICLOFENAC SODIUM
     Indication: Pain in extremity
     Dosage: UNK
     Route: 065
  16. BUPIVACAINE [Concomitant]
     Active Substance: BUPIVACAINE
     Indication: Product used for unknown indication
     Dosage: UNK, FORMULATION: SOLUTION BLOCK/INFILTRATION
     Route: 065

REACTIONS (2)
  - Off label use [Unknown]
  - Drug ineffective [Unknown]
